FAERS Safety Report 6210723-X (Version None)
Quarter: 2009Q2

REPORT INFORMATION
  Report Type: 
  Country: None (occurrence: None)
  Receive Date: 20090528
  Receipt Date: 20090528
  Transmission Date: 20091009
  Serious: Yes (Disabling)
  Sender: FDA-Public Use
  Company Number: None

PATIENT
  Sex: Male
  Weight: 91.6266 kg

DRUGS (2)
  1. ARICEPT [Suspect]
     Indication: AMNESIA
     Dosage: 1 DALY MORNING PO
     Route: 048
     Dates: start: 20090320, end: 20090504
  2. ARICEPT [Suspect]
     Indication: AMNESIA
     Dosage: 2 DALY MORNING PO
     Route: 048
     Dates: start: 20090505, end: 20090513

REACTIONS (8)
  - ASTHENIA [None]
  - BLOOD PRESSURE INCREASED [None]
  - CONFUSIONAL STATE [None]
  - DIZZINESS [None]
  - FLUSHING [None]
  - HEADACHE [None]
  - MIGRAINE [None]
  - VISUAL IMPAIRMENT [None]
